FAERS Safety Report 8956160 (Version 3)
Quarter: 2013Q2

REPORT INFORMATION
  Report Type: Spontaneous
  Country: US (occurrence: US)
  Receive Date: 20121210
  Receipt Date: 20130403
  Transmission Date: 20140414
  Serious: Yes (Hospitalization)
  Sender: FDA-Public Use
  Company Number: PHHY2011US117424

PATIENT
  Age: 47 Year
  Sex: Female
  Weight: 52.15 kg

DRUGS (16)
  1. GILENYA [Suspect]
     Indication: RELAPSING-REMITTING MULTIPLE SCLEROSIS
     Dosage: 0.5 MG
     Route: 048
     Dates: start: 20110128
  2. GILENYA [Suspect]
     Dosage: 0.5 MG, QD
     Route: 048
     Dates: start: 20110215, end: 201108
  3. GILENYA [Suspect]
     Dosage: 0.5 MG, QD
     Route: 048
     Dates: start: 201108, end: 201109
  4. GILENYA [Suspect]
     Dosage: 0.5 MG, QD
     Route: 048
     Dates: start: 201111
  5. GILENYA [Suspect]
     Dosage: 0.5 MG, QD
     Route: 048
     Dates: start: 20111228
  6. GILENYA [Suspect]
     Dosage: 0.5 MG, QD
     Route: 048
     Dates: start: 201202, end: 20120312
  7. GILENYA [Suspect]
     Dosage: 0.5 MG, QD
     Route: 048
     Dates: end: 201208
  8. GILENYA [Suspect]
     Dosage: 0.5 MG, QD
     Route: 048
     Dates: end: 201211
  9. GILENYA [Suspect]
     Dosage: 0.5 UNK, UNK
     Route: 048
     Dates: start: 20121126, end: 20121130
  10. GILENYA [Suspect]
     Dosage: 0.5 MG, QD
     Route: 048
  11. GILENYA [Suspect]
     Dosage: UNK
  12. METHYLPREDNISOLONE [Concomitant]
  13. PREDNISONE [Concomitant]
  14. VIVELLE-DOT [Concomitant]
  15. PROMETRIUM [Concomitant]
  16. CRESTOR [Concomitant]

REACTIONS (19)
  - Asthenopia [Unknown]
  - Head discomfort [Unknown]
  - Blepharitis [Not Recovered/Not Resolved]
  - Eyelid oedema [Not Recovered/Not Resolved]
  - Eyelid pain [Unknown]
  - Eye irritation [Unknown]
  - Eye swelling [Not Recovered/Not Resolved]
  - Eye discharge [Unknown]
  - Foreign body sensation in eyes [Recovered/Resolved]
  - Visual impairment [Not Recovered/Not Resolved]
  - Vision blurred [Not Recovered/Not Resolved]
  - Dry eye [Unknown]
  - Abnormal sensation in eye [Unknown]
  - Ocular surface disease [Not Recovered/Not Resolved]
  - Eye inflammation [Unknown]
  - Optic neuritis [Recovering/Resolving]
  - Eye pain [Recovered/Resolved]
  - Dizziness [Not Recovered/Not Resolved]
  - Eye infection [Recovered/Resolved]
